FAERS Safety Report 24628086 (Version 2)
Quarter: 2025Q3

REPORT INFORMATION
  Report Type: Report from Study
  Country: ZA (occurrence: ZA)
  Receive Date: 20241117
  Receipt Date: 20250802
  Transmission Date: 20251021
  Serious: Yes (Hospitalization, Other)
  Sender: ALEXION PHARMACEUTICALS
  Company Number: ZA-AstraZeneca-CH-00744007A

PATIENT
  Age: 70 Year
  Sex: Female

DRUGS (6)
  1. BUDESONIDE\FORMOTEROL [Suspect]
     Active Substance: BUDESONIDE\FORMOTEROL
  2. ELIQUIS [Concomitant]
     Active Substance: APIXABAN
  3. ALPRAZOLAM [Concomitant]
     Active Substance: ALPRAZOLAM
     Indication: Anxiety
  4. BISOPROLOL [Concomitant]
     Active Substance: BISOPROLOL
     Indication: Hypertension
  5. Mibitez [Concomitant]
     Indication: Hyperlipidaemia
  6. OXYGEN [Concomitant]
     Active Substance: OXYGEN
     Route: 065

REACTIONS (2)
  - Pneumonia [Unknown]
  - Oxygen saturation decreased [Recovered/Resolved]
